FAERS Safety Report 5009790-0 (Version None)
Quarter: 2006Q2

REPORT INFORMATION
  Report Type: 
  Country: None (occurrence: None)
  Receive Date: 20060523
  Receipt Date: 20060523
  Transmission Date: 20061013
  Serious: Yes (Death, Hospitalization)
  Sender: FDA-Public Use
  Company Number: None

PATIENT
  Age: 63 Year
  Sex: Male
  Weight: 73.2 kg

DRUGS (2)
  1. ERBITUX [Suspect]
     Indication: COLON CANCER
     Dates: start: 20060103
  2. ERBITUX [Suspect]
     Indication: METASTASES TO BONE
     Dates: start: 20060103

REACTIONS (6)
  - ANAPHYLACTIC REACTION [None]
  - APNOEA [None]
  - BRONCHOSPASM [None]
  - CARDIAC ARREST [None]
  - CEREBRAL DISORDER [None]
  - THERAPY NON-RESPONDER [None]
